FAERS Safety Report 4426045-3 (Version None)
Quarter: 2004Q3

REPORT INFORMATION
  Report Type: 
  Country: None (occurrence: None)
  Receive Date: 20040812
  Receipt Date: 20040802
  Transmission Date: 20050211
  Serious: Yes (Death, Hospitalization)
  Sender: FDA-Public Use
  Company Number: 04-08-1129

PATIENT
  Age: 48 Year
  Sex: Female

DRUGS (3)
  1. DOXYCYCLINE HYCLATE [Suspect]
     Indication: DERMATOMYOSITIS
     Dosage: ORAL
     Route: 048
  2. DOXYCYCLINE HYCLATE [Suspect]
     Indication: PNEUMONIA CHLAMYDIAL
     Dosage: ORAL
     Route: 048
  3. PREDNISONE [Concomitant]

REACTIONS (19)
  - CARDIAC ARREST [None]
  - COMA [None]
  - CONFUSIONAL STATE [None]
  - CONVULSION [None]
  - DISORIENTATION [None]
  - ELECTROMECHANICAL DISSOCIATION [None]
  - GENERAL PHYSICAL HEALTH DETERIORATION [None]
  - HAEMATEMESIS [None]
  - HAEMOLYSIS [None]
  - HEADACHE [None]
  - HYPERREFLEXIA [None]
  - IRRITABILITY [None]
  - JAUNDICE [None]
  - PALLOR [None]
  - PYREXIA [None]
  - RENAL FAILURE [None]
  - RETINAL HAEMORRHAGE [None]
  - SOMNOLENCE [None]
  - THROMBOTIC THROMBOCYTOPENIC PURPURA [None]
